FAERS Safety Report 24648315 (Version 1)
Quarter: 2024Q4

REPORT INFORMATION
  Report Type: Spontaneous
  Country: US (occurrence: None)
  Receive Date: 20241121
  Receipt Date: 20241121
  Transmission Date: 20250115
  Serious: Yes (Hospitalization)
  Sender: Public
  Company Number: None

PATIENT
  Age: 34 Year
  Sex: Female
  Weight: 67 kg

DRUGS (2)
  1. PRIVIGEN [Suspect]
     Active Substance: HUMAN IMMUNOGLOBULIN G
     Indication: Small fibre neuropathy
     Dosage: OTHER FREQUENCY : X3 DAYS EVERY 4 WE;?
     Route: 042
     Dates: start: 20241113, end: 20241114
  2. PRIVIGEN [Concomitant]
     Active Substance: HUMAN IMMUNOGLOBULIN G
     Dates: start: 20241113, end: 20241114

REACTIONS (9)
  - Headache [None]
  - Neck pain [None]
  - Photophobia [None]
  - Myalgia [None]
  - Nausea [None]
  - Vomiting [None]
  - Neutrophil count increased [None]
  - Protein total abnormal [None]
  - Meningitis [None]

NARRATIVE: CASE EVENT DATE: 20241115
